FAERS Safety Report 13282810 (Version 1)
Quarter: 2017Q1

REPORT INFORMATION
  Report Type: Spontaneous
  Country: US (occurrence: US)
  Receive Date: 20170301
  Receipt Date: 20170301
  Transmission Date: 20170428
  Serious: No
  Sender: FDA-Public Use
  Company Number: US-BAUSCH-SYM-2013-06131

PATIENT
  Age: 60 Year
  Sex: Female

DRUGS (5)
  1. VISUDYNE [Suspect]
     Active Substance: VERTEPORFIN
     Route: 065
     Dates: start: 20011102, end: 20011102
  2. VISUDYNE [Suspect]
     Active Substance: VERTEPORFIN
     Route: 065
     Dates: start: 20020118, end: 20020118
  3. VISUDYNE [Suspect]
     Active Substance: VERTEPORFIN
     Route: 065
     Dates: start: 20011220, end: 20011220
  4. VISUDYNE [Suspect]
     Active Substance: VERTEPORFIN
     Route: 065
     Dates: start: 20020228, end: 20020228
  5. VISUDYNE [Suspect]
     Active Substance: VERTEPORFIN
     Indication: PATHOLOGIC MYOPIA
     Route: 065
     Dates: start: 20010928, end: 20010928

REACTIONS (3)
  - Chest pain [Unknown]
  - Muscle spasms [Unknown]
  - Back pain [Unknown]

NARRATIVE: CASE EVENT DATE: 20020319
